FAERS Safety Report 4950084-7 (Version None)
Quarter: 2006Q1

REPORT INFORMATION
  Report Type: 
  Country: None (occurrence: None)
  Receive Date: 20060320
  Receipt Date: 20060320
  Transmission Date: 20060701
  Serious: No
  Sender: FDA-Public Use
  Company Number: None

PATIENT
  Age: 41 Year
  Sex: Male
  Weight: 64 kg

DRUGS (1)
  1. ABELCET [Suspect]
     Indication: MENINGITIS CRYPTOCOCCAL
     Dosage: 5MG/KG/DAY IV INFUSION  (270 MG IV DAILY)
     Route: 042
     Dates: start: 20051011, end: 20051015

REACTIONS (1)
  - BLOOD CREATININE INCREASED [None]
